FAERS Safety Report 6911642-3 (Version None)
Quarter: 2010Q3

REPORT INFORMATION
  Report Type: 
  Country: None (occurrence: None)
  Receive Date: 20100806
  Receipt Date: 20100730
  Transmission Date: 20110219
  Serious: Yes (Other)
  Sender: FDA-Public Use
  Company Number: GB-B.I. PHARMACEUTICALS,INC./RIDGEFIELD-2010-DE-04081DE

PATIENT
  Sex: Female
  Weight: 105 kg

DRUGS (3)
  1. TIOTROPIUM BROMIDE [Suspect]
     Indication: CHRONIC OBSTRUCTIVE PULMONARY DISEASE
     Dosage: 2.5 MCG
     Route: 055
     Dates: start: 20100614, end: 20100730
  2. SERETIDE DISCUS (SALMETEROL; FLIXOTIDE) [Concomitant]
     Indication: CHRONIC OBSTRUCTIVE PULMONARY DISEASE
     Dosage: FORMULATION: INH, STRENGTH: 50/250, DAILY DOSE: 100/500
     Route: 048
     Dates: start: 20080101
  3. WARFARIN SODIUM [Concomitant]
     Indication: THROMBOSIS
     Dosage: 10 MG
     Route: 048
     Dates: start: 20070201

REACTIONS (1)
  - DISORIENTATION [None]
